FAERS Safety Report 13735299 (Version 1)
Quarter: 2017Q3

REPORT INFORMATION
  Report Type: Report from Study
  Country: US (occurrence: US)
  Receive Date: 20170710
  Receipt Date: 20170710
  Transmission Date: 20171127
  Serious: Yes (Hospitalization)
  Sender: FDA-Public Use
  Company Number: US-GILEAD-2017-0280329

PATIENT
  Age: 53 Year
  Sex: Female

DRUGS (2)
  1. VELETRI [Suspect]
     Active Substance: EPOPROSTENOL
     Indication: PRODUCT USED FOR UNKNOWN INDICATION
     Route: 042
  2. AMBRISENTAN [Suspect]
     Active Substance: AMBRISENTAN
     Indication: PRODUCT USED FOR UNKNOWN INDICATION
     Dosage: 5 MG, QD
     Route: 065
     Dates: start: 20170622

REACTIONS (11)
  - Malaise [Not Recovered/Not Resolved]
  - Nausea [Unknown]
  - Gastric disorder [Unknown]
  - Weight fluctuation [Unknown]
  - Diarrhoea [Unknown]
  - Feeling abnormal [Not Recovered/Not Resolved]
  - Catheter site discharge [Unknown]
  - Catheter site infection [Unknown]
  - Oedema [Unknown]
  - Device malfunction [Recovered/Resolved]
  - Headache [Unknown]
